FAERS Safety Report 9289973 (Version 2)
Quarter: 2014Q3

REPORT INFORMATION
  Report Type: Spontaneous
  Country: US (occurrence: US)
  Receive Date: 20130515
  Receipt Date: 20140725
  Transmission Date: 20150326
  Serious: Yes (Hospitalization, Other)
  Sender: FDA-Public Use
  Company Number: US-JNJFOC-20130304288

PATIENT
  Age: 80 Year
  Sex: Male
  Weight: 72 kg

DRUGS (12)
  1. REMICADE [Suspect]
     Active Substance: INFLIXIMAB
     Indication: CROHN^S DISEASE
     Route: 042
     Dates: start: 20120621
  2. MESALAMINE. [Suspect]
     Active Substance: MESALAMINE
     Indication: CROHN^S DISEASE
     Route: 065
  3. TUMS [Concomitant]
     Active Substance: CALCIUM CARBONATE
     Indication: CROHN^S DISEASE
     Route: 065
  4. ROWASA [Concomitant]
     Active Substance: MESALAMINE
     Indication: CROHN^S DISEASE
     Route: 065
  5. REMICADE [Suspect]
     Active Substance: INFLIXIMAB
     Indication: CROHN^S DISEASE
     Route: 042
     Dates: start: 20120809
  6. REMICADE [Suspect]
     Active Substance: INFLIXIMAB
     Indication: CROHN^S DISEASE
     Route: 042
     Dates: start: 20120705
  7. BALSALAZIDE [Concomitant]
     Active Substance: BALSALAZIDE
     Indication: CROHN^S DISEASE
     Route: 065
  8. 6-MERCAPTOPURINE [Suspect]
     Active Substance: MERCAPTOPURINE
     Indication: CROHN^S DISEASE
     Route: 065
  9. REMICADE [Suspect]
     Active Substance: INFLIXIMAB
     Indication: CROHN^S DISEASE
     Route: 042
  10. MULTI VITAMIN INJECTION [Concomitant]
     Indication: CROHN^S DISEASE
     Route: 050
  11. IRON [Concomitant]
     Active Substance: IRON
     Indication: CROHN^S DISEASE
     Route: 065
  12. REMICADE [Suspect]
     Active Substance: INFLIXIMAB
     Indication: CROHN^S DISEASE
     Route: 042
     Dates: start: 20121004, end: 20130430

REACTIONS (14)
  - Pneumonia bacterial [Recovered/Resolved]
  - Oedema peripheral [Unknown]
  - Clostridium difficile colitis [Recovering/Resolving]
  - Asthenia [Unknown]
  - Lung disorder [Unknown]
  - Dyspnoea [Recovering/Resolving]
  - Candida infection [Unknown]
  - Confusional state [Unknown]
  - Abnormal faeces [Recovering/Resolving]
  - Pollakiuria [Unknown]
  - Cellulitis [Recovering/Resolving]
  - Weight decreased [Unknown]
  - Actinomycotic pulmonary infection [Unknown]
  - Dizziness [Unknown]

NARRATIVE: CASE EVENT DATE: 20120802
